FAERS Safety Report 8426459-0 (Version None)
Quarter: 2012Q2

REPORT INFORMATION
  Report Type: 
  Country: None (occurrence: None)
  Receive Date: 20120611
  Receipt Date: 20110831
  Transmission Date: 20120825
  Serious: Yes (Death, Hospitalization, Other)
  Sender: FDA-Public Use
  Company Number: AT-ABBOTT-11P-009-0850734-00

PATIENT
  Age: 54 Year
  Sex: Male
  Weight: 71.5 kg

DRUGS (17)
  1. MIRTAZAPINE [Concomitant]
     Indication: PRODUCT USED FOR UNKNOWN INDICATION
  2. RENAGEL [Concomitant]
     Indication: PRODUCT USED FOR UNKNOWN INDICATION
     Dosage: WEEKLY DOSE: 42
     Route: 048
  3. CARVEDILOL [Concomitant]
     Indication: PRODUCT USED FOR UNKNOWN INDICATION
  4. HALCION [Concomitant]
     Indication: PRODUCT USED FOR UNKNOWN INDICATION
  5. PANTOPRAZOLE SODIUM [Concomitant]
     Indication: PRODUCT USED FOR UNKNOWN INDICATION
     Dosage: 1-0-0
  6. ZEMPLAR [Suspect]
     Indication: RENAL FAILURE CHRONIC
     Dates: start: 20110302
  7. RENAGEL [Concomitant]
     Dosage: UNIT DOSE AND FREQUENCY: 2-2-2
  8. ARANESP [Concomitant]
     Indication: PRODUCT USED FOR UNKNOWN INDICATION
     Route: 042
  9. ANTIPHOSPHAT [Concomitant]
     Indication: PRODUCT USED FOR UNKNOWN INDICATION
  10. DREISACARB [Concomitant]
     Dosage: WEEKLY DOSE: 43
  11. ANTIPHOSPHAT [Concomitant]
  12. BAYPRESS [Concomitant]
     Indication: PRODUCT USED FOR UNKNOWN INDICATION
     Dosage: 1-0-1
  13. RENAGEL [Concomitant]
     Dosage: WEEKLY DOSE: 42
  14. CLONAZEPAM [Concomitant]
     Indication: PRODUCT USED FOR UNKNOWN INDICATION
     Dosage: 0-0-0-2
  15. RHEUTROP RETARD [Concomitant]
     Indication: PRODUCT USED FOR UNKNOWN INDICATION
  16. SUPRESSIN [Concomitant]
     Indication: PRODUCT USED FOR UNKNOWN INDICATION
     Dosage: 1-0-1
  17. DREISACARB [Concomitant]
     Indication: PRODUCT USED FOR UNKNOWN INDICATION
     Dosage: WEEKLY DOSE: 43
     Route: 048

REACTIONS (7)
  - NERVOUS SYSTEM DISORDER [None]
  - PNEUMONIA [None]
  - CARDIAC DISORDER [None]
  - PULMONARY HAEMORRHAGE [None]
  - MULTI-ORGAN FAILURE [None]
  - CEREBRAL HAEMORRHAGE [None]
  - ARRHYTHMIA [None]
